FAERS Safety Report 9999146 (Version 1)
Quarter: 2014Q1

REPORT INFORMATION
  Report Type: Spontaneous
  Country: US (occurrence: None)
  Receive Date: 20140311
  Receipt Date: 20140311
  Transmission Date: 20141002
  Serious: Yes (Other)
  Sender: FDA-Public Use
  Company Number: None

PATIENT
  Age: 51 Year
  Sex: Female
  Weight: 92.99 kg

DRUGS (2)
  1. MIMVEY 1MG/0.5 MG BARR LABORATORIES [Suspect]
     Indication: VULVOVAGINAL DRYNESS
     Dosage: 1 PILL ONCE DAILY
     Route: 048
     Dates: start: 20140226, end: 20140306
  2. MIMVEY 1MG/0.5 MG BARR LABORATORIES [Suspect]
     Indication: OSTEOPOROSIS PROPHYLAXIS
     Dosage: 1 PILL ONCE DAILY
     Route: 048
     Dates: start: 20140226, end: 20140306

REACTIONS (13)
  - Thinking abnormal [None]
  - Delusion [None]
  - Hallucinations, mixed [None]
  - Paranoia [None]
  - Anxiety [None]
  - Anxiety [None]
  - Fatigue [None]
  - Hypoaesthesia [None]
  - Hypoaesthesia oral [None]
  - Nervousness [None]
  - Sleep disorder [None]
  - Vaginal haemorrhage [None]
  - Vision blurred [None]
